FAERS Safety Report 24398981 (Version 3)
Quarter: 2025Q3

REPORT INFORMATION
  Report Type: Report from Study
  Country: US (occurrence: US)
  Receive Date: 20241004
  Receipt Date: 20250803
  Transmission Date: 20251021
  Serious: Yes (Other)
  Sender: ALEXION PHARMACEUTICALS
  Company Number: US-ASTRAZENECA-202409USA010585US

PATIENT
  Sex: Female

DRUGS (1)
  1. SOLIRIS [Suspect]
     Active Substance: ECULIZUMAB
     Route: 065

REACTIONS (6)
  - Myasthenia gravis [Unknown]
  - COVID-19 [Unknown]
  - Feeling abnormal [Unknown]
  - Muscular weakness [Unknown]
  - Cystitis [Unknown]
  - Viral infection [Unknown]
